FAERS Safety Report 9131065 (Version 3)
Quarter: 2013Q2

REPORT INFORMATION
  Report Type: Report from Study
  Country: US (occurrence: US)
  Receive Date: 20130301
  Receipt Date: 20130604
  Transmission Date: 20140414
  Serious: Yes (Hospitalization, Other)
  Sender: FDA-Public Use
  Company Number: US-BAYER-2013-018850

PATIENT
  Age: 23 Year
  Sex: Female

DRUGS (1)
  1. BETASERON [Suspect]
     Indication: MULTIPLE SCLEROSIS
     Dosage: 8 MIU, QOD
     Route: 058
     Dates: start: 2002

REACTIONS (15)
  - Thyroid disorder [Recovered/Resolved]
  - Musculoskeletal discomfort [Recovered/Resolved]
  - Goitre [Recovered/Resolved]
  - Biopsy thyroid gland abnormal [Recovered/Resolved]
  - Influenza like illness [Not Recovered/Not Resolved]
  - Pain [Not Recovered/Not Resolved]
  - Urinary incontinence [Not Recovered/Not Resolved]
  - Hypertonic bladder [Not Recovered/Not Resolved]
  - Liver function test abnormal [Recovered/Resolved]
  - Vertigo [Recovered/Resolved]
  - Hyporeflexia [None]
  - Neuropathy peripheral [None]
  - Anxiety [None]
  - Sleep disorder [None]
  - Depression [None]
